FAERS Safety Report 8336265-3 (Version None)
Quarter: 2012Q2

REPORT INFORMATION
  Report Type: 
  Country: None (occurrence: None)
  Receive Date: 20120501
  Receipt Date: 20120417
  Transmission Date: 20120825
  Serious: No
  Sender: FDA-Public Use
  Company Number: B0537724A

PATIENT
  Age: 49 Year
  Sex: Female

DRUGS (15)
  1. FLUVOXAMINE MALEATE [Suspect]
  2. MIDAZOLAM [Concomitant]
  3. PAROXETINE HYDROCHLORIDE [Suspect]
     Indication: ANXIETY
  4. NOREPINEPHRINE BITARTRATE [Concomitant]
  5. ROCURONIUM BROMIDE [Concomitant]
  6. PHENYLEPHRINE HCL [Concomitant]
  7. FENTANYL [Suspect]
     Indication: ANAESTHESIA
     Dosage: INTRAVENOUS
     Route: 042
  8. QUETIAPINE [Concomitant]
  9. MEPERIDINE HCL [Suspect]
  10. SEVOFLURANE [Concomitant]
  11. VASOPRESSIN [Concomitant]
  12. METHYLENE BLUE (FORMULATION UNKNOWN) (METHYLENE BLUE) [Suspect]
     Indication: HYPOTENSION
  13. CLONAZEPAM [Concomitant]
  14. DIAZEPAM [Concomitant]
  15. PROPOFOL [Concomitant]

REACTIONS (22)
  - SEROTONIN SYNDROME [None]
  - CONFUSION POSTOPERATIVE [None]
  - HYPERTONIA [None]
  - MYOCLONUS [None]
  - BLOOD CREATININE INCREASED [None]
  - TREMOR [None]
  - MYDRIASIS [None]
  - BLOOD CREATINE PHOSPHOKINASE INCREASED [None]
  - MYOGLOBIN URINE PRESENT [None]
  - TOXIC ENCEPHALOPATHY [None]
  - BLOOD LACTATE DEHYDROGENASE INCREASED [None]
  - HYPOTENSION [None]
  - CHILLS [None]
  - DRUG INTERACTION [None]
  - MITRAL VALVE REPLACEMENT [None]
  - MUSCLE RIGIDITY [None]
  - BLOOD POTASSIUM INCREASED [None]
  - AMYLASE INCREASED [None]
  - AGITATION POSTOPERATIVE [None]
  - WHITE BLOOD CELL COUNT INCREASED [None]
  - ALANINE AMINOTRANSFERASE INCREASED [None]
  - TROPONIN INCREASED [None]
